FAERS Safety Report 24986162 (Version 2)
Quarter: 2025Q2

REPORT INFORMATION
  Report Type: Spontaneous
  Country: JP (occurrence: JP)
  Receive Date: 20250219
  Receipt Date: 20250507
  Transmission Date: 20250717
  Serious: Yes (Other)
  Sender: CHATTEM
  Company Number: JP-OPELLA-2025OHG004444

PATIENT
  Age: 83 Year
  Sex: Male

DRUGS (6)
  1. XYZAL [Suspect]
     Active Substance: LEVOCETIRIZINE DIHYDROCHLORIDE
     Indication: Product used for unknown indication
     Dosage: 5 MG, 1D, EVENING
     Route: 048
     Dates: start: 20250114
  2. HERBALS [Suspect]
     Active Substance: HERBALS
     Indication: Product used for unknown indication
     Route: 048
     Dates: start: 20250114
  3. DAYVIGO [Suspect]
     Active Substance: LEMBOREXANT
     Indication: Product used for unknown indication
     Route: 048
     Dates: start: 20250114
  4. LUMIGAN [Concomitant]
     Active Substance: BIMATOPROST
     Indication: Product used for unknown indication
     Route: 065
  5. ALESION [Concomitant]
     Active Substance: EPINASTINE HYDROCHLORIDE
     Indication: Product used for unknown indication
     Route: 065
  6. BRINZOLAMIDE\TIMOLOL MALEATE [Concomitant]
     Active Substance: BRINZOLAMIDE\TIMOLOL MALEATE
     Indication: Product used for unknown indication
     Route: 065

REACTIONS (7)
  - Pancytopenia [Unknown]
  - Glucose tolerance impaired [Unknown]
  - Decreased appetite [Unknown]
  - Malaise [Unknown]
  - Dyspnoea [Unknown]
  - Incorrect product administration duration [Unknown]
  - Off label use [Unknown]
